FAERS Safety Report 7418509 (Version 2)
Quarter: 2020Q3

REPORT INFORMATION
  Report Type: Report from Study
  Country: US (occurrence: US)
  Receive Date: 20100614
  Receipt Date: 20100818
  Transmission Date: 20201104
  Serious: Yes (Death)
  Sender: FDA-Public Use
  Company Number: US-ROCHE-708486

PATIENT
  Age: 81 Year
  Sex: Female

DRUGS (1)
  1. IBANDRONIC ACID. [Suspect]
     Active Substance: IBANDRONIC ACID
     Indication: OSTEOPOROSIS
     Route: 065
     Dates: end: 20100201

REACTIONS (1)
  - Myeloproliferative neoplasm [Fatal]

NARRATIVE: CASE EVENT DATE: 20100307
